FAERS Safety Report 12406283 (Version 3)
Quarter: 2016Q3

REPORT INFORMATION
  Report Type: Spontaneous
  Country: DE (occurrence: DE)
  Receive Date: 20160526
  Receipt Date: 20160713
  Transmission Date: 20161109
  Serious: Yes (Other)
  Sender: FDA-Public Use
  Company Number: DE-SUN PHARMACEUTICAL INDUSTRIES LTD-2016RR-117312

PATIENT
  Sex: Female

DRUGS (7)
  1. MAGNESIUM [Concomitant]
     Active Substance: MAGNESIUM
     Indication: CERVICAL INCOMPETENCE
     Dosage: UNK, 29.2.-29.2. GESTATIONAL WEEK
     Route: 064
     Dates: start: 20150516, end: 20150516
  2. FOLIO FORTE [Concomitant]
     Active Substance: FOLIC ACID\VITAMINS
     Indication: PROPHYLAXIS OF NEURAL TUBE DEFECT
     Dosage: 0.8 MG, DAILY, 5.-38.3. GESTATIONAL WEEK
     Route: 064
  3. AMOXICILLIN. [Concomitant]
     Active Substance: AMOXICILLIN
     Indication: CYSTITIS
     Dosage: UNK, 9.4.-10.1. GESTATIONAL WEEK
     Route: 064
     Dates: start: 20141229, end: 20150102
  4. CELESTAN [Concomitant]
     Active Substance: BETAMETHASONE
     Indication: MATERNAL THERAPY TO ENHANCE FOETAL LUNG MATURITY
     Dosage: 12 MG, DAILY, 28.2.-28.3. GESTATIONAL WEEK
     Route: 064
     Dates: start: 20150509, end: 20150510
  5. CITALOPRAM [Suspect]
     Active Substance: CITALOPRAM HYDROBROMIDE
     Indication: DEPRESSION
     Dosage: 20 MG, QD, 28.2.-28.5. GESTATIONAL WEEK
     Route: 064
     Dates: start: 20150509, end: 20150512
  6. CLONT [Concomitant]
     Indication: GARDNERELLA TEST POSITIVE
     Dosage: 2 G, DAILY, 28.2.-29.2. GESTATIONAL WEEK
     Route: 064
     Dates: start: 20150509, end: 20150516
  7. UTROGEST [Concomitant]
     Active Substance: PROGESTERONE
     Indication: CERVICAL INCOMPETENCE
     Dosage: 200 MG, DAILY, 29.2.-29.2. GESTATIONAL WEEK
     Route: 064
     Dates: start: 20150516, end: 20150516

REACTIONS (1)
  - Foetal hypokinesia [Recovered/Resolved]
